FAERS Safety Report 8061611 (Version 5)
Quarter: 2013Q3

REPORT INFORMATION
  Report Type: Spontaneous
  Country: US (occurrence: US)
  Receive Date: 20110729
  Receipt Date: 20130730
  Transmission Date: 20140515
  Serious: No
  Sender: FDA-Public Use
  Company Number: US-PFIZER INC-2011168444

PATIENT
  Sex: Male

DRUGS (1)
  1. VERAPAMIL HCL [Suspect]
     Dosage: 120 MG, DAILY

REACTIONS (8)
  - Drug ineffective [Unknown]
  - Feeling jittery [Unknown]
  - Hypertension [Unknown]
  - Chest pain [Unknown]
  - Feeling abnormal [Unknown]
  - Blood pressure inadequately controlled [Recovered/Resolved]
  - Amnesia [Unknown]
  - Dizziness [Unknown]
